FAERS Safety Report 7833567-1 (Version None)
Quarter: 2011Q4

REPORT INFORMATION
  Report Type: 
  Country: None (occurrence: None)
  Receive Date: 20111024
  Receipt Date: 20111013
  Transmission Date: 20120403
  Serious: Yes (Congenital Anomaly, Other)
  Sender: FDA-Public Use
  Company Number: US-SANOFI-AVENTIS-2011SA068015

PATIENT
  Age: 70 Year
  Sex: Male

DRUGS (1)
  1. ALLEGRA [Suspect]
     Route: 048
     Dates: end: 20111011

REACTIONS (4)
  - SPINAL COLUMN STENOSIS [None]
  - CORONARY ARTERY OCCLUSION [None]
  - HAIRY CELL LEUKAEMIA [None]
  - SURGERY [None]
